FAERS Safety Report 21698988 (Version 1)
Quarter: 2022Q4

REPORT INFORMATION
  Report Type: Spontaneous
  Country: DE (occurrence: DE)
  Receive Date: 20221208
  Receipt Date: 20221208
  Transmission Date: 20230113
  Serious: Yes (Other)
  Sender: FDA-Public Use
  Company Number: DE-Desitin-2022-03250

PATIENT
  Age: 53 Year
  Sex: Female

DRUGS (18)
  1. TOPIRAMATE [Interacting]
     Active Substance: TOPIRAMATE
     Indication: Myoclonus
     Dosage: 300 MG, QD
     Route: 065
  2. TOPIRAMATE [Interacting]
     Active Substance: TOPIRAMATE
     Indication: Generalised tonic-clonic seizure
  3. TOPIRAMATE [Interacting]
     Active Substance: TOPIRAMATE
     Indication: Petit mal epilepsy
  4. LAMOTRIGINE [Suspect]
     Active Substance: LAMOTRIGINE
     Indication: Myoclonus
     Dosage: UNK
     Route: 065
  5. LAMOTRIGINE [Suspect]
     Active Substance: LAMOTRIGINE
     Indication: Generalised tonic-clonic seizure
  6. LAMOTRIGINE [Suspect]
     Active Substance: LAMOTRIGINE
     Indication: Petit mal epilepsy
  7. CARBAMAZEPINE [Interacting]
     Active Substance: CARBAMAZEPINE
     Indication: Myoclonus
     Dosage: 400 MG, Q12H
     Route: 065
  8. CARBAMAZEPINE [Interacting]
     Active Substance: CARBAMAZEPINE
     Indication: Generalised tonic-clonic seizure
  9. CARBAMAZEPINE [Interacting]
     Active Substance: CARBAMAZEPINE
     Indication: Petit mal epilepsy
  10. LEVETIRACETAM [Suspect]
     Active Substance: LEVETIRACETAM
     Indication: Myoclonus
     Dosage: UNK
     Route: 065
  11. LEVETIRACETAM [Suspect]
     Active Substance: LEVETIRACETAM
     Indication: Petit mal epilepsy
  12. LEVETIRACETAM [Suspect]
     Active Substance: LEVETIRACETAM
     Indication: Generalised tonic-clonic seizure
  13. VALPROATE [Interacting]
     Active Substance: VALPROIC ACID
     Indication: Myoclonus
     Dosage: 300 MG, Q12H
     Route: 065
  14. VALPROATE [Interacting]
     Active Substance: VALPROIC ACID
     Indication: Generalised tonic-clonic seizure
  15. VALPROATE [Interacting]
     Active Substance: VALPROIC ACID
     Indication: Petit mal epilepsy
  16. PRIMIDONE [Suspect]
     Active Substance: PRIMIDONE
     Indication: Myoclonus
     Dosage: UNK
     Route: 065
  17. PRIMIDONE [Suspect]
     Active Substance: PRIMIDONE
     Indication: Petit mal epilepsy
  18. PRIMIDONE [Suspect]
     Active Substance: PRIMIDONE
     Indication: Generalised tonic-clonic seizure

REACTIONS (8)
  - Polyneuropathy [Unknown]
  - Petit mal epilepsy [Unknown]
  - Mental disorder [Unknown]
  - Dupuytren^s contracture [Unknown]
  - Drug interaction [Recovered/Resolved]
  - Musculoskeletal stiffness [Unknown]
  - Rash [Unknown]
  - Tremor [Recovering/Resolving]
